FAERS Safety Report 4408652-7 (Version None)
Quarter: 2004Q3

REPORT INFORMATION
  Report Type: 
  Country: None (occurrence: None)
  Receive Date: 20040723
  Receipt Date: 20040713
  Transmission Date: 20050211
  Serious: Yes (Other)
  Sender: FDA-Public Use
  Company Number: 200410571BCA

PATIENT
  Age: 63 Year
  Sex: Female

DRUGS (7)
  1. CIPROFLOXACIN [Suspect]
  2. COUMADIN [Suspect]
  3. EPREX [Suspect]
     Dosage: 2000 U, TOTAL DAILY, SUBCUTANEOUS
     Route: 058
  4. DIGOXIN [Concomitant]
  5. FUROSEMIDE [Concomitant]
  6. RANITIDINE [Concomitant]
  7. TRIAMTERENE [Concomitant]

REACTIONS (5)
  - ATRIAL FIBRILLATION [None]
  - DRUG INTERACTION [None]
  - EMBOLISM [None]
  - RETINAL DISORDER [None]
  - THROMBOSIS [None]
